FAERS Safety Report 4459425-0 (Version None)
Quarter: 2004Q3

REPORT INFORMATION
  Report Type: 
  Country: None (occurrence: None)
  Receive Date: 20040927
  Receipt Date: 20040908
  Transmission Date: 20050211
  Serious: Yes (Hospitalization)
  Sender: FDA-Public Use
  Company Number: DE-GLAXOSMITHKLINE-B0331093B

PATIENT
  Age: 71 Year
  Sex: Male
  Weight: 77 kg

DRUGS (8)
  1. TOPOTECAN [Suspect]
     Indication: SMALL CELL LUNG CANCER STAGE UNSPECIFIED
     Dosage: .75MGM2 PER DAY
     Dates: start: 20040105, end: 20040109
  2. CISPLATIN [Suspect]
     Indication: SMALL CELL LUNG CANCER STAGE UNSPECIFIED
     Dosage: 27MGM2 PER DAY
     Dates: start: 20040109, end: 20040109
  3. EUTHYROX [Concomitant]
  4. UTICORT [Concomitant]
  5. CONCOR [Concomitant]
  6. ENALAPRIL MALEATE [Concomitant]
  7. SPIRO [Concomitant]
  8. NEURONTIN [Concomitant]

REACTIONS (3)
  - ANAEMIA [None]
  - BLOOD POTASSIUM DECREASED [None]
  - RENAL FAILURE [None]
